FAERS Safety Report 9178563 (Version 1)
Quarter: 2013Q1

REPORT INFORMATION
  Report Type: Spontaneous
  Country: US (occurrence: US)
  Receive Date: 20130321
  Receipt Date: 20130321
  Transmission Date: 20140127
  Serious: No
  Sender: FDA-Public Use
  Company Number: US-PFIZER INC-2013091451

PATIENT
  Age: 39 Year
  Sex: Female
  Weight: 44.44 kg

DRUGS (5)
  1. LYRICA [Suspect]
     Indication: NEURALGIA
     Dosage: 75 MG, 1X/DAY
     Route: 048
     Dates: start: 201209
  2. TYLENOL [Concomitant]
     Dosage: UNK
  3. VITAMIN B12 [Concomitant]
     Indication: VITAMIN B12 DEFICIENCY
     Dosage: UNK
  4. IRON [Concomitant]
     Indication: IRON DEFICIENCY
     Dosage: UNK
  5. IRON [Concomitant]
     Indication: ANAEMIA

REACTIONS (3)
  - Pain [Recovering/Resolving]
  - Muscle spasms [Recovering/Resolving]
  - Pain in extremity [Recovering/Resolving]
